FAERS Safety Report 6761721-9 (Version None)
Quarter: 2010Q2

REPORT INFORMATION
  Report Type: 
  Country: None (occurrence: None)
  Receive Date: 20100423
  Receipt Date: 20100414
  Transmission Date: 20101027
  Serious: Yes (Other)
  Sender: FDA-Public Use
  Company Number: AEGBR201000119

PATIENT
  Age: 33 Year
  Sex: Female

DRUGS (2)
  1. IMMUNE GLOBULIN (HUMAN) [Suspect]
     Indication: NERVOUS SYSTEM DISORDER
     Dosage: ; IV
     Route: 042
     Dates: start: 20100101
  2. CLOZAPINE [Suspect]
     Dates: start: 20100216, end: 20100216

REACTIONS (1)
  - WHITE BLOOD CELL COUNT DECREASED [None]
